FAERS Safety Report 10042009 (Version 2)
Quarter: 2014Q2

REPORT INFORMATION
  Report Type: Report from Study
  Country: US (occurrence: US)
  Receive Date: 20140327
  Receipt Date: 20140418
  Transmission Date: 20141212
  Serious: Yes (Other)
  Sender: FDA-Public Use
  Company Number: US-BRISTOL-MYERS SQUIBB COMPANY-20545877

PATIENT
  Age: 49 Year
  Sex: Female

DRUGS (1)
  1. ORENCIA FOR INJ [Suspect]
     Indication: RHEUMATOID ARTHRITIS
     Dosage: ONE INFUSION IN JUN AND ONE INFUSION IN JUL
     Route: 042
     Dates: end: 201212

REACTIONS (1)
  - Surgery [Unknown]
